FAERS Safety Report 8202799-5 (Version None)
Quarter: 2012Q1

REPORT INFORMATION
  Report Type: 
  Country: None (occurrence: None)
  Receive Date: 20120312
  Receipt Date: 20120312
  Transmission Date: 20120608
  Serious: Yes (Life-Threatening, Hospitalization, Other)
  Sender: FDA-Public Use
  Company Number: None

PATIENT
  Sex: Female
  Weight: 50.348 kg

DRUGS (1)
  1. CLOMIPHENE CITRATE [Suspect]
     Indication: DRUG THERAPY
     Dosage: 100.0 MG
     Route: 048
     Dates: start: 20100301, end: 20100302

REACTIONS (1)
  - PANCREATITIS ACUTE [None]
